FAERS Safety Report 7861148 (Version 2)
Quarter: 2012Q4

REPORT INFORMATION
  Report Type: Report from Study
  Country: US (occurrence: US)
  Receive Date: 20110317
  Receipt Date: 20120924
  Transmission Date: 20130627
  Serious: Yes (Hospitalization)
  Sender: FDA-Public Use
  Company Number: PHHO2010US14296

PATIENT
  Age: 61 Year
  Sex: Male
  Weight: 77.5 kg

DRUGS (4)
  1. AFINITOR [Suspect]
     Indication: METASTATIC RENAL CELL CARCINOMA
     Dosage: 10 mg, UNK
     Route: 048
     Dates: start: 20100415
  2. MULTIVITAMINS [Concomitant]
  3. TYLENOL [Concomitant]
  4. RESTASIS [Concomitant]

REACTIONS (1)
  - Chest pain [Recovered/Resolved]
